FAERS Safety Report 6056619-8 (Version None)
Quarter: 2009Q1

REPORT INFORMATION
  Report Type: 
  Country: None (occurrence: None)
  Receive Date: 20090126
  Receipt Date: 20090126
  Transmission Date: 20090719
  Serious: No
  Sender: FDA-Public Use
  Company Number: None

PATIENT
  Sex: Female
  Weight: 68.0396 kg

DRUGS (2)
  1. DEMEROL [Suspect]
     Indication: MULTIPLE SCLEROSIS
     Dosage: 100 MG Q3H PO
     Route: 048
  2. DEMEROL [Suspect]
     Indication: NEURALGIA
     Dosage: 100 MG Q3H PO
     Route: 048

REACTIONS (1)
  - THERAPEUTIC RESPONSE DECREASED [None]
